FAERS Safety Report 6032038-5 (Version None)
Quarter: 2009Q1

REPORT INFORMATION
  Report Type: 
  Country: None (occurrence: None)
  Receive Date: 20090107
  Receipt Date: 20081223
  Transmission Date: 20090719
  Serious: Yes (Hospitalization)
  Sender: FDA-Public Use
  Company Number: 2008S1021723

PATIENT
  Age: 60 Year
  Sex: Female
  Weight: 60 kg

DRUGS (3)
  1. BISOPROLOL FUMARATE [Suspect]
     Indication: HYPERTENSION
     Dosage: 10 MG; DAILY;
     Dates: start: 20081202, end: 20081207
  2. LODOZ [Concomitant]
  3. LEVOTHYROX [Concomitant]

REACTIONS (5)
  - ACCIDENTAL EXPOSURE [None]
  - ATRIOVENTRICULAR BLOCK COMPLETE [None]
  - BLOOD PRESSURE SYSTOLIC INCREASED [None]
  - LOSS OF CONSCIOUSNESS [None]
  - MALAISE [None]
